FAERS Safety Report 6784933-7 (Version None)
Quarter: 2010Q2

REPORT INFORMATION
  Report Type: 
  Country: None (occurrence: None)
  Receive Date: 20100618
  Receipt Date: 20100607
  Transmission Date: 20101027
  Serious: Yes (Hospitalization)
  Sender: FDA-Public Use
  Company Number: 230008J10CAN

PATIENT
  Age: 36 Year
  Sex: Female

DRUGS (1)
  1. REBIF [Suspect]
     Indication: RELAPSING-REMITTING MULTIPLE SCLEROSIS
     Dosage: 44 MCG, 3 IN 1 WK
     Dates: start: 20050324

REACTIONS (5)
  - CYSTITIS [None]
  - GAIT DISTURBANCE [None]
  - HYPOAESTHESIA [None]
  - PYREXIA [None]
  - RELAPSING-REMITTING MULTIPLE SCLEROSIS [None]
